FAERS Safety Report 6873758-X (Version None)
Quarter: 2010Q3

REPORT INFORMATION
  Report Type: 
  Country: None (occurrence: None)
  Receive Date: 20100723
  Receipt Date: 20100715
  Transmission Date: 20110219
  Serious: Yes (Death, Life-Threatening, Hospitalization, Other)
  Sender: FDA-Public Use
  Company Number: JP-ABBOTT-10P-087-0631516-00

PATIENT
  Sex: Female

DRUGS (7)
  1. HUMIRA [Suspect]
     Indication: RHEUMATOID ARTHRITIS
     Route: 058
     Dates: start: 20090625, end: 20100218
  2. METHOTREXATE [Interacting]
     Indication: RHEUMATOID ARTHRITIS
     Dates: start: 20090101
  3. METHOTREXATE [Interacting]
     Dates: start: 20090528, end: 20091216
  4. METHOTREXATE [Interacting]
     Dates: start: 20091217, end: 20100218
  5. STEROID [Concomitant]
     Indication: PRODUCT USED FOR UNKNOWN INDICATION
  6. SODIUM AUROTHIOMALATE [Concomitant]
     Indication: PRODUCT USED FOR UNKNOWN INDICATION
     Route: 050
     Dates: start: 20060101
  7. PREDNISOLONE [Concomitant]
     Indication: RHEUMATOID ARTHRITIS
     Route: 048
     Dates: start: 20060726, end: 20100218

REACTIONS (17)
  - CANDIDIASIS [None]
  - DEPRESSED LEVEL OF CONSCIOUSNESS [None]
  - DRUG INTERACTION [None]
  - HYPERCAPNIA [None]
  - IMMUNODEFICIENCY [None]
  - INFECTION [None]
  - INTERSTITIAL LUNG DISEASE [None]
  - METABOLIC ALKALOSIS [None]
  - MOUTH BREATHING [None]
  - OPPORTUNISTIC INFECTION [None]
  - PNEUMOCYSTIS JIROVECI PNEUMONIA [None]
  - PNEUMOCYSTIS TEST POSITIVE [None]
  - RENAL IMPAIRMENT [None]
  - RESPIRATORY DISORDER [None]
  - RESPIRATORY FAILURE [None]
  - RHEUMATOID LUNG [None]
  - RHINORRHOEA [None]
